FAERS Safety Report 15290014 (Version 1)
Quarter: 2018Q3

REPORT INFORMATION
  Report Type: Spontaneous
  Country: ZA (occurrence: ZA)
  Receive Date: 20180817
  Receipt Date: 20180817
  Transmission Date: 20181010
  Serious: Yes (Other)
  Sender: FDA-Public Use
  Company Number: ZA-JNJFOC-20180809811

PATIENT
  Age: 25 Year
  Sex: Female

DRUGS (11)
  1. LINEZOLID. [Suspect]
     Active Substance: LINEZOLID
     Indication: TUBERCULOSIS
     Route: 048
     Dates: start: 20180530, end: 20180725
  2. PYRIDOXINE [Concomitant]
     Active Substance: PYRIDOXINE
     Route: 065
  3. ELTROXIN [Concomitant]
     Active Substance: LEVOTHYROXINE
     Route: 065
  4. PARA?AMINOSALICYLIC ACID [Suspect]
     Active Substance: AMINOSALICYLIC ACID
     Indication: TUBERCULOSIS
     Route: 048
     Dates: start: 20180205, end: 20180725
  5. TERIZIDONE [Suspect]
     Active Substance: TERIZIDONE
     Indication: TUBERCULOSIS
     Route: 048
     Dates: start: 20180205, end: 20180725
  6. TENOFOVIR DISOPROXIL FUMARATE. [Concomitant]
     Active Substance: TENOFOVIR DISOPROXIL FUMARATE
     Route: 065
  7. SIRTURO [Suspect]
     Active Substance: BEDAQUILINE FUMARATE
     Indication: TUBERCULOSIS
     Route: 048
     Dates: start: 20180530, end: 20180725
  8. DELAMANID [Suspect]
     Active Substance: DELAMANID
     Indication: TUBERCULOSIS
     Route: 048
     Dates: start: 20180530, end: 20180725
  9. EMTRICITABINE [Concomitant]
     Active Substance: EMTRICITABINE
     Route: 065
  10. CLOFAZIMINE [Suspect]
     Active Substance: CLOFAZIMINE
     Indication: TUBERCULOSIS
     Route: 048
     Dates: start: 20171130, end: 20180725
  11. ALUVIA [Concomitant]
     Active Substance: LOPINAVIR\RITONAVIR
     Route: 065

REACTIONS (2)
  - Drug-induced liver injury [Recovering/Resolving]
  - Anaemia [Recovering/Resolving]

NARRATIVE: CASE EVENT DATE: 20180725
